FAERS Safety Report 8828013 (Version 6)
Quarter: 2013Q1

REPORT INFORMATION
  Report Type: Spontaneous
  Country: US (occurrence: US)
  Receive Date: 20121008
  Receipt Date: 20130109
  Transmission Date: 20140127
  Serious: No
  Sender: FDA-Public Use
  Company Number: US-009507513-1210USA001573

PATIENT
  Sex: Male

DRUGS (2)
  1. PEGINTRON [Suspect]
     Indication: HEPATITIS C
     Dosage: UNK
     Dates: start: 20120928
  2. RIBAVIRIN [Suspect]
     Indication: HEPATITIS C
     Dosage: UNK
     Route: 048
     Dates: start: 20120928

REACTIONS (26)
  - Muscle spasms [Unknown]
  - Pain [Unknown]
  - Insomnia [Unknown]
  - Influenza like illness [Unknown]
  - Nausea [Unknown]
  - Headache [Unknown]
  - Dizziness [Unknown]
  - Fatigue [Unknown]
  - Nausea [Unknown]
  - Headache [Unknown]
  - Dizziness [Unknown]
  - Pyrexia [Unknown]
  - Decreased appetite [Unknown]
  - Malaise [Unknown]
  - Pyrexia [Unknown]
  - Headache [Unknown]
  - Memory impairment [Unknown]
  - Nausea [Unknown]
  - Decreased appetite [Unknown]
  - Chromaturia [Unknown]
  - Thirst [Unknown]
  - Local swelling [Unknown]
  - Injection site nodule [Unknown]
  - Memory impairment [Unknown]
  - Headache [Unknown]
  - Product quality issue [Unknown]
